FAERS Safety Report 4886115-2 (Version None)
Quarter: 2006Q1

REPORT INFORMATION
  Report Type: 
  Country: None (occurrence: None)
  Receive Date: 20060118
  Receipt Date: 20060118
  Transmission Date: 20060701
  Serious: Yes (Death)
  Sender: FDA-Public Use
  Company Number: None

PATIENT
  Age: 53 Year
  Sex: Male
  Weight: 59.8748 kg

DRUGS (2)
  1. CISPLATIN [Suspect]
     Dosage: 53 MG  WEEKLY  INTRAVENOUS DRIP
     Route: 041
     Dates: start: 20051220, end: 20051220
  2. IRINOTECAN HCL [Suspect]
     Dosage: 88 MG  WEEKLY  INTRAVENOUS DRIP
     Route: 041
     Dates: start: 20051220, end: 20051220

REACTIONS (4)
  - DIARRHOEA [None]
  - DRUG TOXICITY [None]
  - NEOPLASM RECURRENCE [None]
  - WOUND DEHISCENCE [None]
